FAERS Safety Report 5800574-X (Version None)
Quarter: 2008Q3

REPORT INFORMATION
  Report Type: 
  Country: None (occurrence: None)
  Receive Date: 20080703
  Receipt Date: 20080628
  Transmission Date: 20090109
  Serious: Yes (Other)
  Sender: FDA-Public Use
  Company Number: US-PFIZER INC-2008042805

PATIENT
  Sex: Female
  Weight: 41.8 kg

DRUGS (2)
  1. XALATAN [Suspect]
     Indication: GLAUCOMA
     Route: 047
  2. DRUG, UNSPECIFIED [Concomitant]

REACTIONS (5)
  - CATARACT OPERATION [None]
  - DRY EYE [None]
  - EYE IRRITATION [None]
  - EYE PAIN [None]
  - INSOMNIA [None]
